FAERS Safety Report 14690674 (Version 2)
Quarter: 2018Q3

REPORT INFORMATION
  Report Type: Report from Study
  Country: GB (occurrence: GB)
  Receive Date: 20180328
  Receipt Date: 20180801
  Transmission Date: 20181010
  Serious: Yes (Hospitalization)
  Sender: FDA-Public Use
  Company Number: GB-TEVA-2018-GB-873173

PATIENT
  Age: 73 Year
  Sex: Female

DRUGS (2)
  1. DEXAMETHASONE. [Suspect]
     Active Substance: DEXAMETHASONE
     Indication: PLASMA CELL MYELOMA
     Route: 065
  2. POMALIDOMIDE [Suspect]
     Active Substance: POMALIDOMIDE
     Indication: PLASMA CELL MYELOMA
     Route: 048

REACTIONS (1)
  - Pyrexia [Recovered/Resolved]

NARRATIVE: CASE EVENT DATE: 20170910
